FAERS Safety Report 5176938-7 (Version None)
Quarter: 2006Q4

REPORT INFORMATION
  Report Type: 
  Country: None (occurrence: None)
  Receive Date: 20061218
  Receipt Date: 20060314
  Transmission Date: 20070319
  Serious: Yes (Hospitalization, Other)
  Sender: FDA-Public Use
  Company Number: PHBS2006JP04062

PATIENT
  Age: 18 Year
  Sex: Male

DRUGS (2)
  1. TEGRETOL [Suspect]
     Indication: EPILEPSY
     Dosage: 200 MG/DAY
     Route: 065
     Dates: start: 20051201, end: 20060101
  2. TEGRETOL [Suspect]
     Route: 065
     Dates: start: 20060101, end: 20060101

REACTIONS (15)
  - ANTICONVULSANT DRUG LEVEL DECREASED [None]
  - BLOOD CREATINE PHOSPHOKINASE INCREASED [None]
  - BLOOD IMMUNOGLOBULIN A DECREASED [None]
  - BLOOD IMMUNOGLOBULIN G DECREASED [None]
  - BLOOD IMMUNOGLOBULIN M DECREASED [None]
  - BLOOD PRESSURE INCREASED [None]
  - DERMATOMYOSITIS [None]
  - DRUG HYPERSENSITIVITY [None]
  - HEART RATE INCREASED [None]
  - MUSCULAR WEAKNESS [None]
  - NEUROLEPTIC MALIGNANT SYNDROME [None]
  - PAIN IN EXTREMITY [None]
  - POLYMYOSITIS [None]
  - PYREXIA [None]
  - RASH [None]
